FAERS Safety Report 21024705 (Version 2)
Quarter: 2023Q1

REPORT INFORMATION
  Report Type: Spontaneous
  Country: US (occurrence: US)
  Receive Date: 20220629
  Receipt Date: 20230102
  Transmission Date: 20230417
  Serious: No
  Sender: FDA-Public Use
  Company Number: US-BoehringerIngelheim-2022-BI-179149

PATIENT
  Age: 81 Year
  Sex: Male

DRUGS (1)
  1. SPIRIVA [Suspect]
     Active Substance: TIOTROPIUM BROMIDE MONOHYDRATE
     Indication: Product used for unknown indication
     Dosage: ACT 2.5
     Route: 048

REACTIONS (3)
  - Hypoacusis [Unknown]
  - Dyspnoea [Unknown]
  - Visual impairment [Unknown]
